FAERS Safety Report 23966339 (Version 1)
Quarter: 2024Q2

REPORT INFORMATION
  Report Type: Spontaneous
  Country: TW (occurrence: TW)
  Receive Date: 20240612
  Receipt Date: 20240612
  Transmission Date: 20240717
  Serious: Yes (Other)
  Sender: FDA-Public Use
  Company Number: TW-STRIDES ARCOLAB LIMITED-2024SP006633

PATIENT
  Age: 46 Year
  Sex: Female

DRUGS (3)
  1. ZOLPIDEM [Suspect]
     Active Substance: ZOLPIDEM TARTRATE
     Indication: Insomnia
     Dosage: 10 MILLIGRAM, QD (PER DAY)
     Route: 048
  2. ZOLPIDEM [Suspect]
     Active Substance: ZOLPIDEM TARTRATE
     Dosage: UNK, (INCREASED DOSAGE AND FREQUENCY OF ZOLPIDEM REACHING 350 TO 400MG PER DAY OVER A YEAR)
     Route: 048
  3. ZOLPIDEM [Suspect]
     Active Substance: ZOLPIDEM TARTRATE
     Dosage: UNK (DAYTIME USE)
     Route: 048

REACTIONS (16)
  - Movement disorder [Unknown]
  - Restlessness [Unknown]
  - Intentional product use issue [Unknown]
  - Intentional product misuse [Unknown]
  - Drug abuse [Unknown]
  - Drug withdrawal syndrome [Unknown]
  - Malaise [Unknown]
  - Anxiety [Unknown]
  - Yawning [Unknown]
  - Rhinorrhoea [Unknown]
  - Lacrimation increased [Unknown]
  - Tremor [Unknown]
  - Drug dependence [Unknown]
  - Memory impairment [Unknown]
  - Performance status decreased [Unknown]
  - Affect lability [Unknown]
